FAERS Safety Report 8470872-2 (Version None)
Quarter: 2012Q2

REPORT INFORMATION
  Report Type: 
  Country: None (occurrence: None)
  Receive Date: 20120627
  Receipt Date: 20120607
  Transmission Date: 20120825
  Serious: No
  Sender: FDA-Public Use
  Company Number: US-ASTRAZENECA-2011SE41454

PATIENT
  Age: 62 Year
  Sex: Female
  Weight: 83.9 kg

DRUGS (51)
  1. NEXIUM [Suspect]
     Route: 048
  2. NEXIUM [Suspect]
     Route: 048
     Dates: start: 20100731
  3. AVAPRO [Concomitant]
     Dates: start: 20100731
  4. PRILOSEC [Concomitant]
     Dates: start: 20010324
  5. ZOCOR [Concomitant]
     Indication: BLOOD CHOLESTEROL
  6. PLAVIX [Concomitant]
     Indication: CARDIAC DISORDER
     Dates: start: 20050101
  7. METAMUCIL-2 [Concomitant]
  8. PCE [Concomitant]
  9. UROMAR [Concomitant]
     Indication: BLADDER SPASM
  10. ESTROPIPATE [Concomitant]
     Dosage: 1.5MG (1.25 MG) ,TK ONE T PO QD
     Route: 048
     Dates: start: 20061130
  11. NEXIUM [Suspect]
     Indication: CHEST PAIN
     Route: 048
     Dates: start: 20010101
  12. NEXIUM [Suspect]
     Route: 048
  13. PRILOSEC [Concomitant]
     Dates: start: 20010724
  14. ASPIRIN [Concomitant]
     Indication: ANTICOAGULANT THERAPY
  15. NORVASC [Concomitant]
     Indication: BLOOD PRESSURE
  16. NITROGLYCERIN [Concomitant]
     Indication: OESOPHAGEAL SPASM
  17. NEXIUM [Suspect]
     Dosage: 1/DAY, TOOK 2/DAY FROM FEBRUARY 2006 TO DECEMBER 2006
     Route: 048
     Dates: start: 20010401
  18. ATENOLOL [Concomitant]
     Indication: CARDIAC DISORDER
  19. AVAPRO [Concomitant]
     Indication: CARDIAC DISORDER
     Dosage: 30 MG
  20. PAXIL [Concomitant]
  21. NEXIUM [Suspect]
     Dosage: 1/DAY, TOOK 2/DAY FROM FEBRUARY 2006 TO DECEMBER 2006
     Route: 048
     Dates: start: 20010401
  22. PRILOSEC [Concomitant]
     Indication: GASTROOESOPHAGEAL REFLUX DISEASE
  23. FOSAMOX [Concomitant]
     Indication: OSTEOPOROSIS
  24. CENESTIN [Concomitant]
     Dates: end: 20060101
  25. NEXIUM [Suspect]
     Route: 048
     Dates: start: 20011218
  26. ATENOLOL [Concomitant]
     Dosage: 50MG, TK ONE T PO D
     Route: 048
     Dates: start: 20061130
  27. HYDROCHLOROTHIZIDE [Concomitant]
     Dates: start: 20100731
  28. PRILOSEC [Concomitant]
     Dates: start: 20010324
  29. CELEXA [Concomitant]
     Indication: ANXIETY
     Dates: start: 20050101
  30. CENESTIN [Concomitant]
     Indication: HORMONE THERAPY
  31. BENTYL [Concomitant]
  32. NEXIUM [Suspect]
     Indication: GASTROOESOPHAGEAL REFLUX DISEASE
     Route: 048
     Dates: start: 20010101
  33. NEXIUM [Suspect]
     Route: 048
     Dates: start: 20011218
  34. HYDROCHLOROTHIZIDE [Concomitant]
     Indication: CARDIAC DISORDER
  35. PRILOSEC [Concomitant]
     Indication: CHEST PAIN
  36. ZOCOR [Concomitant]
     Dates: start: 20100731
  37. PLAVIX [Concomitant]
     Indication: PERIPHERAL VASCULAR DISORDER
     Dates: start: 20050101
  38. CELEXA [Concomitant]
     Indication: DEPRESSION
     Dates: start: 20050101
  39. PAXIL [Concomitant]
     Indication: DEPRESSION
     Dates: start: 20011218
  40. EFFEXOR XR [Concomitant]
     Dates: end: 20050101
  41. CEFZIL [Concomitant]
  42. NEXIUM [Suspect]
     Route: 048
     Dates: start: 20100731
  43. ATENOLOL [Concomitant]
     Dates: start: 20100731
  44. PRILOSEC [Concomitant]
     Dates: start: 20010724
  45. LEVOTHYROXINE [Concomitant]
     Indication: HYPOTHYROIDISM
     Dosage: 80 TO 88 MCG
  46. CELEXA [Concomitant]
     Dates: start: 20100731
  47. CELEXA [Concomitant]
     Dates: start: 20100731
  48. PREMARIN [Concomitant]
     Indication: HORMONE THERAPY
  49. DIOVAN [Concomitant]
     Indication: BLOOD PRESSURE
  50. EFFEXOR XR [Concomitant]
     Indication: DEPRESSION
     Dates: start: 20011219
  51. PHENERGAN [Concomitant]

REACTIONS (14)
  - LIMB DISCOMFORT [None]
  - INFLUENZA [None]
  - ABDOMINAL PAIN LOWER [None]
  - OSTEOPOROSIS [None]
  - CHEST PAIN [None]
  - ABDOMINAL PAIN [None]
  - NECK PAIN [None]
  - DEPRESSION [None]
  - OSTEOPENIA [None]
  - BONE DENSITY DECREASED [None]
  - PERIPHERAL VASCULAR DISORDER [None]
  - FALL [None]
  - HYPOTHYROIDISM [None]
  - MUSCULOSKELETAL DISCOMFORT [None]
